FAERS Safety Report 7470058-4 (Version None)
Quarter: 2011Q2

REPORT INFORMATION
  Report Type: 
  Country: None (occurrence: None)
  Receive Date: 20110510
  Receipt Date: 20110504
  Transmission Date: 20111010
  Serious: Yes (Other)
  Sender: FDA-Public Use
  Company Number: US-B.I. PHARMACEUTICALS,INC./RIDGEFIELD-2011-BP-08818BP

PATIENT
  Age: 77 Year
  Sex: Female
  Weight: 121.11 kg

DRUGS (6)
  1. MEDROXYPROGESTERONE [Concomitant]
  2. PRADAXA [Suspect]
     Indication: ATRIAL FIBRILLATION
     Dosage: 300 MG
     Dates: start: 20101216, end: 20101230
  3. NEXIUM [Concomitant]
     Dosage: 40 MG
  4. LOTREL [Concomitant]
  5. SINGULAIR [Concomitant]
     Dosage: 10 MG
  6. HYDROCHLOROTHIAZIDE [Concomitant]
     Dosage: 12.5 MG

REACTIONS (2)
  - DIVERTICULAR PERFORATION [None]
  - MELAENA [None]
